APPROVED DRUG PRODUCT: LEVOFLOXACIN
Active Ingredient: LEVOFLOXACIN
Strength: EQ 500MG/20ML (EQ 25MG/ML)
Dosage Form/Route: INJECTABLE;INJECTION
Application: A205968 | Product #001
Applicant: ZYDUS PHARMACEUTICALS USA INC
Approved: Jun 1, 2017 | RLD: No | RS: No | Type: DISCN